FAERS Safety Report 17952869 (Version 1)
Quarter: 2020Q2

REPORT INFORMATION
  Report Type: Spontaneous
  Country: GB (occurrence: GB)
  Receive Date: 20200627
  Receipt Date: 20200627
  Transmission Date: 20200714
  Serious: Yes (Hospitalization)
  Sender: FDA-Public Use
  Company Number: GB-ACCORD-187270

PATIENT
  Age: 80 Year
  Sex: Male

DRUGS (5)
  1. GEMCITABINE/GEMCITABINE HYDROCHLORIDE [Suspect]
     Active Substance: GEMCITABINE\GEMCITABINE HYDROCHLORIDE
     Indication: TRANSITIONAL CELL CARCINOMA
     Dosage: ON DAY 1 AND DAY 8
     Route: 041
     Dates: start: 20200214
  2. CODEINE PHOSPHATE/PARACETAMOL [Suspect]
     Active Substance: ACETAMINOPHEN\CODEINE PHOSPHATE
     Indication: MUSCULOSKELETAL PAIN
     Dosage: CODEINE PHOSPHATE 30 MG/PARACETAMOL 500 MG
     Route: 048
     Dates: start: 20200206
  3. PREDNISOLONE. [Concomitant]
     Active Substance: PREDNISOLONE
     Indication: MUSCULOSKELETAL PAIN
     Dates: start: 20200203, end: 20200206
  4. AVELUMAB [Suspect]
     Active Substance: AVELUMAB
     Indication: TRANSITIONAL CELL CARCINOMA
     Dosage: DAY 1,
     Route: 041
     Dates: start: 20200214
  5. CISPLATIN. [Suspect]
     Active Substance: CISPLATIN
     Indication: TRANSITIONAL CELL CARCINOMA
     Dosage: ON DAY 1
     Route: 041
     Dates: start: 20200214

REACTIONS (1)
  - Constipation [Recovered/Resolved]

NARRATIVE: CASE EVENT DATE: 20200216
